FAERS Safety Report 10411678 (Version 1)
Quarter: 2014Q3

REPORT INFORMATION
  Report Type: Report from Study
  Country: ZA (occurrence: ZA)
  Receive Date: 20140827
  Receipt Date: 20140827
  Transmission Date: 20150326
  Serious: Yes (Hospitalization, Other)
  Sender: FDA-Public Use
  Company Number: ZA-BAYER-2014-086227

PATIENT
  Sex: Male

DRUGS (4)
  1. CORTISONE [Suspect]
     Active Substance: CORTISONE\HYDROCORTISONE
  2. BETAFERON [Suspect]
     Active Substance: INTERFERON BETA-1B
     Dosage: UNK
     Dates: start: 2008
  3. BETAFERON [Suspect]
     Active Substance: INTERFERON BETA-1B
     Dosage: UNK
     Dates: start: 200608, end: 200707
  4. BETAFERON [Suspect]
     Active Substance: INTERFERON BETA-1B
     Dosage: UNK
     Dates: start: 2007, end: 2008

REACTIONS (18)
  - Nasal operation [None]
  - Injection site pain [None]
  - Drug dependence [None]
  - Depression [None]
  - Headache [None]
  - Pneumonia [None]
  - Sinus headache [None]
  - Neuropathy peripheral [None]
  - Varicella [None]
  - Tremor [None]
  - Mood swings [None]
  - Injection site reaction [None]
  - Meningitis [None]
  - Influenza like illness [None]
  - Hypertension [None]
  - Lupus-like syndrome [None]
  - Sinus disorder [None]
  - Acne [None]

NARRATIVE: CASE EVENT DATE: 2008
